FAERS Safety Report 8558766 (Version 2)
Quarter: 2012Q4

REPORT INFORMATION
  Report Type: 
  Country: US (occurrence: US)
  Receive Date: 20120511
  Receipt Date: 20121205
  Transmission Date: 20130627
  Serious: Yes (Other)
  Sender: FDA-Public Use
  Company Number: US-JNJFOC-20120503403

PATIENT
  Sex: Female
  Weight: 31.75 kg

DRUGS (19)
  1. REMICADE [Suspect]
     Indication: CROHN^S DISEASE
     Dosage: strength - 347.7 (400), 4 vials
     Route: 042
     Dates: start: 20070511, end: 20110729
  2. STEROIDS NOS [Suspect]
     Indication: PRODUCT USED FOR UNKNOWN INDICATION
     Route: 065
     Dates: start: 2011
  3. CALCIUM CARBONATE [Concomitant]
     Route: 065
  4. VITAMIN D [Concomitant]
     Route: 065
  5. ACIPHEX [Concomitant]
     Route: 065
  6. ALLEGRA [Concomitant]
     Route: 065
  7. ASPIRIN [Concomitant]
     Route: 065
  8. FISH OIL [Concomitant]
     Route: 065
  9. JANUVIA [Concomitant]
     Route: 065
  10. LOPRESSOR [Concomitant]
     Route: 065
  11. MAVIK [Concomitant]
     Route: 065
  12. METRONIDAZOLE [Concomitant]
     Route: 065
  13. OS-CAL 500 + VITAMIN D [Concomitant]
     Route: 065
  14. RESTASIS [Concomitant]
     Route: 065
  15. SYNTHROID [Concomitant]
     Route: 065
  16. AMITRIPTYLINE HYDROCHLORIDE [Concomitant]
     Route: 065
  17. TOPROL XL [Concomitant]
     Route: 065
  18. TYLENOL [Concomitant]
     Route: 065
  19. VITAMIN D3 [Concomitant]
     Route: 065

REACTIONS (5)
  - Weight increased [Recovered/Resolved]
  - Memory impairment [Not Recovered/Not Resolved]
  - Faecal incontinence [Unknown]
  - Dizziness [Recovered/Resolved]
  - Feeling abnormal [Recovered/Resolved]
